FAERS Safety Report 20079820 (Version 1)
Quarter: 2021Q4

REPORT INFORMATION
  Report Type: Other
  Country: US (occurrence: None)
  Receive Date: 20211117
  Receipt Date: 20211117
  Transmission Date: 20220303
  Serious: Yes (Other)
  Sender: FDA-Public Use
  Company Number: US-ROCHE-2952740

PATIENT
  Sex: Male

DRUGS (2)
  1. ESBRIET [Suspect]
     Active Substance: PIRFENIDONE
     Indication: Pulmonary fibrosis
     Dosage: 3 TABLETS, 3 TIME A DAY
     Route: 048
  2. ESBRIET [Suspect]
     Active Substance: PIRFENIDONE
     Indication: Dyspnoea

REACTIONS (6)
  - Hypobarism [Unknown]
  - Renal disorder [Unknown]
  - COVID-19 [Unknown]
  - Scar [Unknown]
  - Fatigue [Recovering/Resolving]
  - Lung abscess [Unknown]
